FAERS Safety Report 18649569 (Version 2)
Quarter: 2021Q1

REPORT INFORMATION
  Report Type: Spontaneous
  Country: US (occurrence: US)
  Receive Date: 20201222
  Receipt Date: 20210325
  Transmission Date: 20210419
  Serious: Yes (Other)
  Sender: FDA-Public Use
  Company Number: US-BAYER-2020-283436

PATIENT
  Age: 4 Decade
  Sex: Female
  Weight: 64.86 kg

DRUGS (4)
  1. ACYCLOVIR ABBOTT VIAL [Concomitant]
     Dosage: 400 MG, BID
  2. PROPANOLOL BOEHRINGER [Concomitant]
     Dosage: 10 MG, QD
  3. SKYLA [Suspect]
     Active Substance: LEVONORGESTREL
     Indication: INTRAUTERINE CONTRACEPTION
     Dosage: 14 ?G PER DAY CONTINUOUSLY
     Route: 015
     Dates: start: 20180309
  4. SERTRALINE [Concomitant]
     Active Substance: SERTRALINE HYDROCHLORIDE
     Dosage: 1 DF, QD

REACTIONS (8)
  - Depression [None]
  - Genital infection fungal [Not Recovered/Not Resolved]
  - Vaginal haemorrhage [None]
  - Dysuria [None]
  - Uterine haemorrhage [None]
  - Menstruation irregular [None]
  - Medical device site discomfort [None]
  - Pelvic pain [None]

NARRATIVE: CASE EVENT DATE: 20200916
